FAERS Safety Report 24619368 (Version 1)
Quarter: 2024Q4

REPORT INFORMATION
  Report Type: Spontaneous
  Country: GB (occurrence: GB)
  Receive Date: 20241114
  Receipt Date: 20241114
  Transmission Date: 20250115
  Serious: Yes (Other)
  Sender: ALEXION PHARMACEUTICALS
  Company Number: None

PATIENT
  Age: 69 Year
  Weight: 82 kg

DRUGS (7)
  1. BEVESPI AEROSPHERE [Suspect]
     Active Substance: FORMOTEROL FUMARATE\GLYCOPYRROLATE
  2. BEVESPI AEROSPHERE [Suspect]
     Active Substance: FORMOTEROL FUMARATE\GLYCOPYRROLATE
  3. BECLOMETHASONE [Suspect]
     Active Substance: BECLOMETHASONE
  4. BECLOMETHASONE [Suspect]
     Active Substance: BECLOMETHASONE
     Indication: Asthma
     Dosage: 2 PUFFS TWICE A DAY
  5. MONTELUKAST [Concomitant]
     Active Substance: MONTELUKAST
     Indication: Asthma
  6. DOXAZOSIN [Concomitant]
     Active Substance: DOXAZOSIN\DOXAZOSIN MESYLATE
     Indication: Hypertension
  7. RAMIPRIL [Concomitant]
     Active Substance: RAMIPRIL

REACTIONS (6)
  - Prostatic specific antigen increased [Unknown]
  - Urine flow decreased [Unknown]
  - Medication error [Unknown]
  - Faecaloma [Not Recovered/Not Resolved]
  - Weight increased [Not Recovered/Not Resolved]
  - Glossitis [Not Recovered/Not Resolved]
